FAERS Safety Report 25956951 (Version 1)
Quarter: 2025Q4

REPORT INFORMATION
  Report Type: Spontaneous
  Country: US (occurrence: US)
  Receive Date: 20251024
  Receipt Date: 20251024
  Transmission Date: 20260118
  Serious: Yes (Hospitalization, Other)
  Sender: DIFGEN PHARMACEUTICALS LLC
  Company Number: US-Difgen-012201

PATIENT
  Sex: Male

DRUGS (1)
  1. FENTANYL [Suspect]
     Active Substance: FENTANYL
     Indication: Product used for unknown indication
     Dosage: 10 TO 20 BAGS OF FENTANYL PER DAY
     Route: 042

REACTIONS (4)
  - Endocarditis [Unknown]
  - Septic shock [Unknown]
  - Septic pulmonary embolism [Unknown]
  - Drug withdrawal syndrome [Unknown]
